FAERS Safety Report 24654324 (Version 1)
Quarter: 2024Q4

REPORT INFORMATION
  Report Type: Spontaneous
  Country: US (occurrence: US)
  Receive Date: 20241122
  Receipt Date: 20241122
  Transmission Date: 20250114
  Serious: No
  Sender: GALDERMA
  Company Number: US-GALDERMA-US2024016357

PATIENT

DRUGS (4)
  1. NEMLUVIO [Suspect]
     Active Substance: NEMOLIZUMAB-ILTO
     Indication: Neurodermatitis
     Dosage: 30 MILLIGRAM
     Route: 058
     Dates: start: 202410
  2. NEMLUVIO [Suspect]
     Active Substance: NEMOLIZUMAB-ILTO
     Indication: Dermatitis atopic
  3. OXYCODONE [Concomitant]
     Active Substance: OXYCODONE
     Indication: Pain
  4. MORPHINE [Concomitant]
     Active Substance: MORPHINE
     Indication: Pain

REACTIONS (3)
  - Device malfunction [Recovered/Resolved]
  - Incorrect dose administered [Recovered/Resolved]
  - Product use in unapproved indication [Recovered/Resolved]

NARRATIVE: CASE EVENT DATE: 20241001
